FAERS Safety Report 25362815 (Version 3)
Quarter: 2025Q4

REPORT INFORMATION
  Report Type: Report from Study
  Country: EU (occurrence: EU)
  Receive Date: 20250527
  Receipt Date: 20251224
  Transmission Date: 20260117
  Serious: Yes (Hospitalization)
  Sender: MYLAN
  Company Number: None

PATIENT
  Age: 89 Year
  Sex: Male
  Weight: 73 kg

DRUGS (11)
  1. OXALIPLATIN [Suspect]
     Active Substance: OXALIPLATIN
     Indication: Adenocarcinoma gastric
     Dosage: UNK
  2. VYLOY [Suspect]
     Active Substance: ZOLBETUXIMAB-CLZB
     Indication: Adenocarcinoma gastric
     Dosage: 800 MG/SQ. METER, Q2W, 100 MG, POWDER FOR CON. FOR SOL FOR INF 800 MG/M?, ONE INJ EVERY 2 WEEK
     Dates: start: 20250312, end: 20250312
  3. VYLOY [Suspect]
     Active Substance: ZOLBETUXIMAB-CLZB
     Indication: Oesophageal adenocarcinoma
     Dosage: 400 MILLIGRAM/SQ. METER, FREQUENCY: 1
  4. VYLOY [Suspect]
     Active Substance: ZOLBETUXIMAB-CLZB
     Dosage: 400 MILLIGRAM/SQ. METER
  5. VYLOY [Suspect]
     Active Substance: ZOLBETUXIMAB-CLZB
     Dosage: 400 MILLIGRAM/SQ. METER
  6. VYLOY [Suspect]
     Active Substance: ZOLBETUXIMAB-CLZB
     Dosage: 400 MILLIGRAM/SQ. METER
  7. VYLOY [Suspect]
     Active Substance: ZOLBETUXIMAB-CLZB
     Dosage: 400 MILLIGRAM/SQ. METER
  8. VYLOY [Suspect]
     Active Substance: ZOLBETUXIMAB-CLZB
     Dosage: 400 MILLIGRAM/SQ. METER
  9. VYLOY [Suspect]
     Active Substance: ZOLBETUXIMAB-CLZB
     Dosage: 400 MILLIGRAM/SQ. METER
  10. VYLOY [Suspect]
     Active Substance: ZOLBETUXIMAB-CLZB
     Dosage: 400 MILLIGRAM/SQ. METER
  11. FLUOROURACIL [Suspect]
     Active Substance: FLUOROURACIL
     Indication: Adenocarcinoma gastric
     Dosage: UNK

REACTIONS (5)
  - Hepatic cytolysis [Recovered/Resolved]
  - Renal failure [Recovered/Resolved]
  - Asthenia [Recovered/Resolved]
  - Dehydration [Recovered/Resolved]
  - Acute kidney injury [Recovered/Resolved]

NARRATIVE: CASE EVENT DATE: 20250301
